FAERS Safety Report 9449412 (Version 1)
Quarter: 2013Q3

REPORT INFORMATION
  Report Type: Spontaneous
  Country: IT (occurrence: IT)
  Receive Date: 20130809
  Receipt Date: 20130809
  Transmission Date: 20140515
  Serious: Yes (Hospitalization, Other)
  Sender: FDA-Public Use
  Company Number: IT-JNJFOC-20130716661

PATIENT
  Age: 48 Year
  Sex: Female

DRUGS (3)
  1. IBUPROFEN (UNSPECIFIED) [Suspect]
     Indication: MIGRAINE
     Route: 048
     Dates: start: 20130515, end: 20130515
  2. PARACETAMOL [Suspect]
     Route: 048
  3. EFFEXOR [Concomitant]
     Indication: PRODUCT USED FOR UNKNOWN INDICATION
     Route: 048

REACTIONS (4)
  - Loss of consciousness [Recovered/Resolved]
  - Tonic clonic movements [Unknown]
  - Vertigo [Unknown]
  - Vomiting [Unknown]
